FAERS Safety Report 13125637 (Version 2)
Quarter: 2017Q1

REPORT INFORMATION
  Report Type: Spontaneous
  Country: US (occurrence: US)
  Receive Date: 20170118
  Receipt Date: 20170215
  Transmission Date: 20170428
  Serious: Yes (Hospitalization)
  Sender: FDA-Public Use
  Company Number: US-PFIZER INC-2017019954

PATIENT
  Age: 48 Year
  Sex: Male

DRUGS (3)
  1. GABAPENTIN. [Suspect]
     Active Substance: GABAPENTIN
     Indication: SPINAL CORD INJURY
     Dosage: 300 MG, 2X/DAY
     Dates: end: 20170113
  2. GABAPENTIN. [Suspect]
     Active Substance: GABAPENTIN
     Indication: SPINA BIFIDA
  3. GABAPENTIN. [Suspect]
     Active Substance: GABAPENTIN
     Indication: NEURALGIA

REACTIONS (4)
  - Feeling abnormal [Unknown]
  - Peripheral swelling [Unknown]
  - Irritability [Unknown]
  - Product use issue [Unknown]
